FAERS Safety Report 4732746-X (Version None)
Quarter: 2005Q3

REPORT INFORMATION
  Report Type: 
  Country: None (occurrence: None)
  Receive Date: 20050803
  Receipt Date: 20050725
  Transmission Date: 20060218
  Serious: Yes (Hospitalization, Other)
  Sender: FDA-Public Use
  Company Number: CA-GLAXOSMITHKLINE-A0567598A

PATIENT
  Age: 64 Year
  Sex: Male

DRUGS (2)
  1. PAXIL [Suspect]
     Indication: ANXIETY
     Dosage: 20MG UNKNOWN
     Route: 048
     Dates: start: 20050713, end: 20050714
  2. METOPROLOL [Suspect]
     Indication: BLOOD PRESSURE
     Dosage: 25MG TWICE PER DAY
     Route: 065

REACTIONS (4)
  - BRADYCARDIA [None]
  - DRUG INTERACTION [None]
  - NAUSEA [None]
  - SYNCOPE [None]
